FAERS Safety Report 7663886-3 (Version None)
Quarter: 2011Q3

REPORT INFORMATION
  Report Type: 
  Country: None (occurrence: None)
  Receive Date: 20110805
  Receipt Date: 20100810
  Transmission Date: 20111222
  Serious: No
  Sender: FDA-Public Use
  Company Number: US-ABBOTT-10P-163-0663274-00

PATIENT
  Sex: Female
  Weight: 84.444 kg

DRUGS (5)
  1. NIASPAN [Suspect]
     Indication: BLOOD CHOLESTEROL INCREASED
     Route: 048
     Dates: start: 20090101
  2. SIMVASTATIN [Concomitant]
     Indication: PRODUCT USED FOR UNKNOWN INDICATION
     Route: 048
  3. LISINOPRIL [Concomitant]
     Indication: HYPERTENSION
     Route: 048
  4. ASPIRIN [Concomitant]
     Indication: FLUSHING
     Dosage: ONCE A DAY PRIOR TO NIASPAN
     Route: 048
  5. ASPIRIN [Concomitant]
     Indication: PROPHYLAXIS

REACTIONS (3)
  - FLUSHING [None]
  - PRURITUS [None]
  - SKIN BURNING SENSATION [None]
